FAERS Safety Report 10052668 (Version 3)
Quarter: 2014Q2

REPORT INFORMATION
  Report Type: Report from Study
  Country: US (occurrence: US)
  Receive Date: 20140402
  Receipt Date: 20140521
  Transmission Date: 20141212
  Serious: Yes (Hospitalization)
  Sender: FDA-Public Use
  Company Number: US-JNJFOC-20140317055

PATIENT
  Age: 12 Year
  Sex: Female
  Weight: 39.1 kg

DRUGS (9)
  1. REMICADE [Suspect]
     Indication: COLITIS ULCERATIVE
     Route: 042
     Dates: start: 20130308
  2. REMICADE [Suspect]
     Indication: COLITIS ULCERATIVE
     Route: 042
     Dates: start: 20130809, end: 20130912
  3. OLANZAPINE [Concomitant]
     Route: 065
  4. ALBUTEROL [Concomitant]
     Route: 065
  5. AMITRIPTYLINE [Concomitant]
     Route: 065
  6. DEXAMETHASONE [Concomitant]
     Route: 065
  7. MELATONIN [Concomitant]
     Route: 065
  8. PREDNISONE [Concomitant]
     Route: 065
  9. TOTAL PARENTERAL NUTRITION [Concomitant]
     Route: 065

REACTIONS (2)
  - Colitis ulcerative [Recovered/Resolved]
  - Decreased appetite [Recovered/Resolved]
